FAERS Safety Report 7374733-1 (Version None)
Quarter: 2011Q1

REPORT INFORMATION
  Report Type: 
  Country: None (occurrence: None)
  Receive Date: 20110325
  Receipt Date: 20100915
  Transmission Date: 20110831
  Serious: No
  Sender: FDA-Public Use
  Company Number: US-MYLANLABS-2010S1017118

PATIENT
  Sex: Female

DRUGS (26)
  1. SKELAXIN [Concomitant]
  2. ATIVAN [Concomitant]
  3. TOPAMAX [Concomitant]
  4. WELLBUTRIN XL [Concomitant]
  5. MULTI-VITAMIN [Concomitant]
  6. DIFLUCAN [Concomitant]
  7. LIDODERM [Concomitant]
  8. AEROBID [Concomitant]
  9. BENEFIBER /01648102/ [Concomitant]
  10. PERCOCET [Concomitant]
  11. NEXIUM [Concomitant]
  12. LISINOPRIL [Concomitant]
  13. MAXZIDE [Concomitant]
  14. CLOTRIMAZOLE [Concomitant]
  15. RANITIDINE [Concomitant]
  16. EVOXAC [Concomitant]
  17. LACTOBACILLUS [Concomitant]
  18. GABITRIL [Concomitant]
  19. AMBIEN CR [Concomitant]
  20. ALLEGRA D 24 HOUR [Concomitant]
  21. SIMVASTATIN [Concomitant]
  22. FENTANYL-100 [Suspect]
     Indication: PAIN
     Dosage: Q72H
     Route: 062
     Dates: start: 20100101
  23. JANUVIA [Concomitant]
  24. SYNTHROID [Concomitant]
  25. BECLOMETHASONE AQUEOUS NASAL SPRAY [Concomitant]
  26. ZOLOFT [Concomitant]

REACTIONS (3)
  - FALSE NEGATIVE INVESTIGATION RESULT [None]
  - PAIN [None]
  - DRUG EFFECT DECREASED [None]
